FAERS Safety Report 7878514-1 (Version None)
Quarter: 2011Q4

REPORT INFORMATION
  Report Type: 
  Country: None (occurrence: None)
  Receive Date: 20111014
  Receipt Date: 20110411
  Transmission Date: 20120403
  Serious: Yes (Hospitalization)
  Sender: FDA-Public Use
  Company Number: 1000019547

PATIENT
  Age: 53 Year
  Sex: Female

DRUGS (3)
  1. LEXAPRO [Suspect]
     Indication: POST-TRAUMATIC STRESS DISORDER
     Dosage: 20 MG (20 MG), ORAL
     Route: 048
     Dates: start: 20110222, end: 20110307
  2. LEXAPRO [Suspect]
     Indication: DEPRESSION
     Dosage: 20 MG (20 MG), ORAL
     Route: 048
     Dates: start: 20110222, end: 20110307
  3. LEXAPRO [Suspect]
     Indication: ANXIETY
     Dosage: 20 MG (20 MG), ORAL
     Route: 048
     Dates: start: 20110222, end: 20110307

REACTIONS (3)
  - FEELING ABNORMAL [None]
  - ABDOMINAL PAIN UPPER [None]
  - DISTURBANCE IN ATTENTION [None]
